FAERS Safety Report 7733499-3 (Version None)
Quarter: 2011Q3

REPORT INFORMATION
  Report Type: 
  Country: None (occurrence: None)
  Receive Date: 20110907
  Receipt Date: 20110907
  Transmission Date: 20111222
  Serious: Yes (Life-Threatening, Hospitalization, Disabling)
  Sender: FDA-Public Use
  Company Number: None

PATIENT
  Age: 73 Year
  Sex: Male
  Weight: 6240 kg

DRUGS (1)
  1. SEREVENT [Suspect]
     Indication: CHRONIC OBSTRUCTIVE PULMONARY DISEASE
     Dosage: 50 MCG
     Route: 050
     Dates: start: 20110308, end: 20110318

REACTIONS (3)
  - ANGIOEDEMA [None]
  - PRODUCT QUALITY ISSUE [None]
  - OBSTRUCTIVE AIRWAYS DISORDER [None]
